FAERS Safety Report 13071991 (Version 1)
Quarter: 2016Q4

REPORT INFORMATION
  Report Type: Spontaneous
  Country: US (occurrence: US)
  Receive Date: 20161228
  Receipt Date: 20161228
  Transmission Date: 20170207
  Serious: Yes (Other)
  Sender: FDA-Public Use
  Company Number: None

PATIENT
  Age: 43 Year
  Sex: Male
  Weight: 85.5 kg

DRUGS (6)
  1. BENDAMUSTINE [Concomitant]
     Active Substance: BENDAMUSTINE
  2. RITUXAN [Suspect]
     Active Substance: RITUXIMAB
     Indication: NON-HODGKIN^S LYMPHOMA
     Dosage: ?          OTHER FREQUENCY:ONE TIME;?
     Route: 042
  3. DOCUSATE [Concomitant]
     Active Substance: DOCUSATE
  4. ALLOPURINOL. [Concomitant]
     Active Substance: ALLOPURINOL
  5. ONDANSETRON [Concomitant]
     Active Substance: ONDANSETRON
  6. HYDROCODONE/ACETAMINOPHEN [Concomitant]
     Active Substance: ACETAMINOPHEN\HYDROCODONE

REACTIONS (6)
  - Throat irritation [None]
  - Nausea [None]
  - Chills [None]
  - Dyspnoea [None]
  - Infusion related reaction [None]
  - Urticaria [None]

NARRATIVE: CASE EVENT DATE: 20161222
